FAERS Safety Report 7609304-2 (Version None)
Quarter: 2011Q3

REPORT INFORMATION
  Report Type: 
  Country: None (occurrence: None)
  Receive Date: 20110714
  Receipt Date: 20110705
  Transmission Date: 20111222
  Serious: Yes (Other)
  Sender: FDA-Public Use
  Company Number: PHHY2011JP60855

PATIENT
  Sex: Male

DRUGS (1)
  1. VOLTAREN [Suspect]
     Dosage: 50 MG DAILY
     Route: 054

REACTIONS (3)
  - DYSPHONIA [None]
  - MENTAL DISORDER [None]
  - DYSKINESIA [None]
